FAERS Safety Report 25578697 (Version 1)
Quarter: 2025Q3

REPORT INFORMATION
  Report Type: Spontaneous
  Country: US (occurrence: None)
  Receive Date: 20250717
  Receipt Date: 20250717
  Transmission Date: 20251020
  Serious: No
  Sender: FDA-CTU
  Company Number: None

PATIENT
  Age: 69 Year
  Sex: Male
  Weight: 75.6 kg

DRUGS (10)
  1. ABIRATERONE ACETATE [Suspect]
     Active Substance: ABIRATERONE ACETATE
     Indication: Prostate cancer
     Dosage: FREQUENCY : DAILY;?
     Route: 048
     Dates: start: 20250507
  2. PREDNISONE [Concomitant]
     Active Substance: PREDNISONE
     Dates: start: 20250507
  3. ELIGARD [Concomitant]
     Active Substance: LEUPROLIDE ACETATE
  4. FINASTERIDE [Concomitant]
     Active Substance: FINASTERIDE
  5. FOLIC ACID [Concomitant]
     Active Substance: FOLIC ACID
  6. GABAPENTIN [Concomitant]
     Active Substance: GABAPENTIN
  7. GEMTESA [Concomitant]
     Active Substance: VIBEGRON
  8. OXYCODONE [Concomitant]
     Active Substance: OXYCODONE
  9. TAMSULOSIN [Concomitant]
     Active Substance: TAMSULOSIN
  10. VALACYCLOVIR [Concomitant]
     Active Substance: VALACYCLOVIR HYDROCHLORIDE

REACTIONS (2)
  - Oral pain [None]
  - Rheumatoid arthritis [None]

NARRATIVE: CASE EVENT DATE: 20250717
